FAERS Safety Report 19750299 (Version 2)
Quarter: 2021Q3

REPORT INFORMATION
  Report Type: Report from Study
  Country: JP (occurrence: JP)
  Receive Date: 20210826
  Receipt Date: 20210907
  Transmission Date: 20211014
  Serious: Yes (Hospitalization)
  Sender: FDA-Public Use
  Company Number: JP-CELGENEUS-JPN-20210804920

PATIENT
  Age: 77 Year
  Sex: Male
  Weight: 78.7 kg

DRUGS (29)
  1. AZACITIDINE. [Suspect]
     Active Substance: AZACITIDINE
     Dosage: 134 MILLIGRAM
     Route: 058
     Dates: start: 20201124, end: 20201130
  2. AZACITIDINE. [Suspect]
     Active Substance: AZACITIDINE
     Dosage: 135 MILLIGRAM
     Route: 058
     Dates: start: 20210326, end: 20210419
  3. AZACITIDINE. [Suspect]
     Active Substance: AZACITIDINE
     Indication: ACUTE MYELOID LEUKAEMIA
     Dosage: 142 MILLIGRAM
     Route: 058
     Dates: start: 20200420, end: 20200428
  4. AZACITIDINE. [Suspect]
     Active Substance: AZACITIDINE
     Dosage: 134 MILLIGRAM
     Route: 058
     Dates: start: 20210608, end: 20210714
  5. NIFEDIPINE. [Concomitant]
     Active Substance: NIFEDIPINE
     Indication: PRODUCT USED FOR UNKNOWN INDICATION
     Route: 065
     Dates: start: 20210203
  6. SODIUM BICARBONATE. [Concomitant]
     Active Substance: SODIUM BICARBONATE
     Indication: PRODUCT USED FOR UNKNOWN INDICATION
     Route: 065
     Dates: start: 20210504
  7. AG?120 [Suspect]
     Active Substance: IVOSIDENIB
     Dosage: 250 MILLIGRAM
     Route: 048
     Dates: start: 20210805
  8. AZACITIDINE. [Suspect]
     Active Substance: AZACITIDINE
     Dosage: 137 MILLIGRAM
     Route: 058
     Dates: start: 20200601, end: 20200609
  9. AZACITIDINE. [Suspect]
     Active Substance: AZACITIDINE
     Dosage: 138 MILLIGRAM
     Route: 058
     Dates: start: 20210118, end: 20210124
  10. MAGNESIUM OXIDE. [Concomitant]
     Active Substance: MAGNESIUM OXIDE
     Indication: PRODUCT USED FOR UNKNOWN INDICATION
     Route: 065
     Dates: start: 20201005
  11. INDAPAMIDE. [Concomitant]
     Active Substance: INDAPAMIDE
     Indication: PRODUCT USED FOR UNKNOWN INDICATION
     Route: 065
     Dates: start: 20210709
  12. PIRENOXINE SODIUM [Concomitant]
     Indication: PRODUCT USED FOR UNKNOWN INDICATION
     Route: 065
  13. ROSUVASTATIN CALCIUM. [Concomitant]
     Active Substance: ROSUVASTATIN CALCIUM
     Indication: PRODUCT USED FOR UNKNOWN INDICATION
     Route: 065
  14. NIFEDIPINE. [Concomitant]
     Active Substance: NIFEDIPINE
     Route: 065
  15. AZACITIDINE. [Suspect]
     Active Substance: AZACITIDINE
     Dosage: 136 MILLIGRAM
     Route: 058
     Dates: start: 20201221, end: 20201227
  16. AZACITIDINE. [Suspect]
     Active Substance: AZACITIDINE
     Dosage: 133 MILLIGRAM
     Route: 058
     Dates: start: 20210511, end: 20210517
  17. FEBUXOSTAT. [Concomitant]
     Active Substance: FEBUXOSTAT
     Indication: PRODUCT USED FOR UNKNOWN INDICATION
     Route: 065
     Dates: start: 20210202
  18. DARBEPOETIN ALFA [Concomitant]
     Active Substance: DARBEPOETIN ALFA
     Indication: PRODUCT USED FOR UNKNOWN INDICATION
     Route: 065
     Dates: start: 20210517
  19. FUROSEMIDE. [Concomitant]
     Active Substance: FUROSEMIDE
     Indication: PRODUCT USED FOR UNKNOWN INDICATION
     Route: 065
     Dates: start: 20210709
  20. AZACITIDINE. [Suspect]
     Active Substance: AZACITIDINE
     Dosage: 134 MILLIGRAM
     Route: 058
     Dates: start: 20200629, end: 20200707
  21. AZACITIDINE. [Suspect]
     Active Substance: AZACITIDINE
     Dosage: 137 MILLIGRAM
     Route: 058
     Dates: start: 20210216, end: 20210222
  22. NIFEDIPINE. [Concomitant]
     Active Substance: NIFEDIPINE
     Route: 065
  23. VONOPRAZAN [Concomitant]
     Active Substance: VONOPRAZAN
     Indication: PRODUCT USED FOR UNKNOWN INDICATION
     Route: 065
  24. AG?120 [Suspect]
     Active Substance: IVOSIDENIB
     Dosage: 500 MILLIGRAM
     Route: 048
     Dates: start: 20200428
  25. AZACITIDINE. [Suspect]
     Active Substance: AZACITIDINE
     Dosage: 136 MILLIGRAM
     Route: 058
     Dates: start: 20200803, end: 20200811
  26. AZACITIDINE. [Suspect]
     Active Substance: AZACITIDINE
     Dosage: 133 MILLIGRAM
     Route: 058
     Dates: start: 20200908, end: 20201105
  27. DOXAZOSIN MESILATE [Concomitant]
     Active Substance: DOXAZOSIN MESYLATE
     Indication: PRODUCT USED FOR UNKNOWN INDICATION
     Route: 065
     Dates: start: 20210309
  28. SODIUM POLYSTYRENE SULFONATE. [Concomitant]
     Active Substance: SODIUM POLYSTYRENE SULFONATE
     Indication: PRODUCT USED FOR UNKNOWN INDICATION
     Route: 065
     Dates: start: 20210608
  29. AG?120 [Suspect]
     Active Substance: IVOSIDENIB
     Indication: ACUTE MYELOID LEUKAEMIA
     Dosage: 500 MILLIGRAM
     Route: 048
     Dates: start: 20200420, end: 20200427

REACTIONS (2)
  - Renal disorder [Not Recovered/Not Resolved]
  - Renal disorder [Recovered/Resolved]

NARRATIVE: CASE EVENT DATE: 20210805
